FAERS Safety Report 8448675-4 (Version None)
Quarter: 2012Q2

REPORT INFORMATION
  Report Type: 
  Country: None (occurrence: None)
  Receive Date: 20120619
  Receipt Date: 20120613
  Transmission Date: 20120825
  Serious: Yes (Hospitalization, Disabling, Other)
  Sender: FDA-Public Use
  Company Number: US-MERCK-1108USA01245

PATIENT
  Age: 82 Year
  Sex: Female

DRUGS (5)
  1. FOSAMAX PLUS D [Suspect]
     Indication: OSTEOPOROSIS
     Route: 048
     Dates: start: 20061122, end: 20091125
  2. FOSAMAX [Suspect]
     Indication: OSTEOPOROSIS PROPHYLAXIS
     Route: 048
  3. ZOMETA [Suspect]
     Route: 042
     Dates: end: 20110101
  4. FOSAMAX [Suspect]
     Indication: OSTEOPENIA
     Route: 048
  5. FOSAMAX [Suspect]
     Indication: OSTEOPOROSIS
     Route: 048
     Dates: start: 20100107, end: 20101027

REACTIONS (44)
  - CHONDROCALCINOSIS PYROPHOSPHATE [None]
  - ARTERIOSCLEROSIS [None]
  - CARDIAC MURMUR [None]
  - SPONDYLOLISTHESIS [None]
  - CHRONIC OBSTRUCTIVE PULMONARY DISEASE [None]
  - OSTEORADIONECROSIS [None]
  - AREFLEXIA [None]
  - CARDIOMEGALY [None]
  - CAROTID BRUIT [None]
  - SUPRAVENTRICULAR EXTRASYSTOLES [None]
  - MULTIPLE MYELOMA [None]
  - NOCTURIA [None]
  - NIPPLE DISORDER [None]
  - LEFT VENTRICULAR HYPERTROPHY [None]
  - TYMPANIC MEMBRANE ATROPHIC [None]
  - TOOTH DISORDER [None]
  - NEPHROGENIC ANAEMIA [None]
  - FEMORAL BRUIT [None]
  - HYPERTENSIVE HEART DISEASE [None]
  - OEDEMA [None]
  - PUPILLARY DEFORMITY [None]
  - GOITRE [None]
  - RENAL FAILURE CHRONIC [None]
  - POLYARTHRITIS [None]
  - ABSCESS BACTERIAL [None]
  - ABSCESS ORAL [None]
  - ORAL DISORDER [None]
  - MEMORY IMPAIRMENT [None]
  - OSTEONECROSIS OF JAW [None]
  - ARCUS LIPOIDES [None]
  - ORAL INFECTION [None]
  - VULVITIS [None]
  - ATROPHIC VULVOVAGINITIS [None]
  - SOFT TISSUE INFECTION [None]
  - PUPILS UNEQUAL [None]
  - ACTINOMYCOSIS [None]
  - TREMOR [None]
  - STRABISMUS [None]
  - CATARACT [None]
  - GINGIVAL INFECTION [None]
  - ABDOMINAL BRUIT [None]
  - SOFT TISSUE DISORDER [None]
  - SKIN DEPIGMENTATION [None]
  - CONFUSIONAL STATE [None]
